FAERS Safety Report 18059769 (Version 1)
Quarter: 2020Q3

REPORT INFORMATION
  Report Type: Spontaneous
  Country: US (occurrence: US)
  Receive Date: 20200723
  Receipt Date: 20200723
  Transmission Date: 20201103
  Serious: Yes (Hospitalization)
  Sender: FDA-Public Use
  Company Number: None

PATIENT
  Age: 78 Year
  Sex: Female

DRUGS (20)
  1. DRISDOL 50,000 IU [Concomitant]
  2. LORAZEPAM 1MG TABLETS [Concomitant]
  3. ASPIRIN 81MG EC TABLETS [Concomitant]
  4. NITROSTAT 0.4MG SL TABLETS [Concomitant]
  5. REPATHA [Suspect]
     Active Substance: EVOLOCUMAB
     Indication: HYPERLIPIDAEMIA
     Dosage: ?          OTHER FREQUENCY:EVERY 2 WEEKS;?
     Route: 058
     Dates: start: 20200406
  6. FAMOTIDINE 20MG [Concomitant]
     Active Substance: FAMOTIDINE
  7. MECLIZINE 25MG TABLETS [Concomitant]
  8. TUMERIC 500MG CAPSULES [Concomitant]
  9. VITAMIN B?12 1000MCG TABLETS [Concomitant]
  10. GLUCOSAMINE CHONDROITIN COMPLEX CAPS [Concomitant]
  11. SYNTHROID 100MCG TABLETS [Concomitant]
  12. ATENOLOL 25MG TABLETS [Concomitant]
  13. VITAMIN C 500MG TABLETS [Concomitant]
  14. ATORVASTATIN 40MG TABLETS [Concomitant]
     Active Substance: ATORVASTATIN CALCIUM
  15. CLOPIDOGREL 75MG TABLETS [Concomitant]
  16. COENZYME Q10 [Concomitant]
     Active Substance: DIETARY SUPPLEMENT\UBIDECARENONE
  17. ISOSORBIDE MONONITRATE 30MG ER TABS [Concomitant]
  18. MELATONIN 3MG TABLETS [Concomitant]
  19. ROSUVASTATIN 5MG TABLETS [Concomitant]
  20. SERTRALINE 50MG TABLETS [Concomitant]
     Active Substance: SERTRALINE HYDROCHLORIDE

REACTIONS (1)
  - Headache [None]

NARRATIVE: CASE EVENT DATE: 20200709
